FAERS Safety Report 17420463 (Version 1)
Quarter: 2020Q1

REPORT INFORMATION
  Report Type: Report from Study
  Country: JP (occurrence: JP)
  Receive Date: 20200214
  Receipt Date: 20200214
  Transmission Date: 20200409
  Serious: Yes (Hospitalization, Other)
  Sender: FDA-Public Use
  Company Number: JP-GUERBET-JP-20200003

PATIENT
  Sex: Male

DRUGS (2)
  1. LIDOCAINE. [Concomitant]
     Active Substance: LIDOCAINE
     Indication: LOCAL ANAESTHESIA
     Route: 065
  2. LIPIODOL [Suspect]
     Active Substance: ETHIODIZED OIL
     Indication: PHOTODYNAMIC DIAGNOSTIC PROCEDURE
     Dosage: 0.2-0.5 ML
     Route: 062

REACTIONS (3)
  - Hemianopia homonymous [Recovering/Resolving]
  - Embolic cerebral infarction [Recovering/Resolving]
  - Product use in unapproved indication [Unknown]
